FAERS Safety Report 7448315-7 (Version None)
Quarter: 2011Q2

REPORT INFORMATION
  Report Type: 
  Country: None (occurrence: None)
  Receive Date: 20110429
  Receipt Date: 20110420
  Transmission Date: 20111010
  Serious: Yes (Hospitalization)
  Sender: FDA-Public Use
  Company Number: US-ASTRAZENECA-2011SE22361

PATIENT
  Age: 54 Year
  Sex: Female
  Weight: 79.4 kg

DRUGS (2)
  1. ALPRAZOLAM [Concomitant]
     Indication: ANXIETY
  2. SEROQUEL [Suspect]
     Indication: BIPOLAR DISORDER
     Route: 048
     Dates: start: 20050101

REACTIONS (10)
  - AGGRESSION [None]
  - KNEE OPERATION [None]
  - INTERVERTEBRAL DISC OPERATION [None]
  - SKIN PAPILLOMA [None]
  - BLOOD CHOLESTEROL INCREASED [None]
  - HEART RATE INCREASED [None]
  - URINARY INCONTINENCE [None]
  - HYPERTENSION [None]
  - WEIGHT INCREASED [None]
  - IMPULSIVE BEHAVIOUR [None]
